FAERS Safety Report 5499244-X (Version None)
Quarter: 2007Q4

REPORT INFORMATION
  Report Type: 
  Country: None (occurrence: None)
  Receive Date: 20071026
  Receipt Date: 20071016
  Transmission Date: 20080405
  Serious: Yes (Hospitalization)
  Sender: FDA-Public Use
  Company Number: BR-JNJFOC-20070704395

PATIENT
  Age: 24 Year
  Sex: Female
  Weight: 76 kg

DRUGS (4)
  1. ORTHO EVRA [Suspect]
     Indication: NEOPLASM PROPHYLAXIS
     Route: 062
  2. ORTHO EVRA [Suspect]
     Indication: CONTRACEPTION
     Route: 062
  3. CORTICOSTEROID [Concomitant]
  4. LANSOPRAZOLE [Concomitant]
     Indication: GASTRITIS
     Route: 065

REACTIONS (8)
  - APPLICATION SITE DISCOMFORT [None]
  - BREAST MASS [None]
  - OFF LABEL USE [None]
  - PAIN IN EXTREMITY [None]
  - RASH [None]
  - STATUS ASTHMATICUS [None]
  - THERAPEUTIC RESPONSE UNEXPECTED [None]
  - THYROID DISORDER [None]
